FAERS Safety Report 21185119 (Version 1)
Quarter: 2022Q3

REPORT INFORMATION
  Report Type: Spontaneous
  Country: CN (occurrence: CN)
  Receive Date: 20220808
  Receipt Date: 20220808
  Transmission Date: 20221027
  Serious: Yes (Hospitalization)
  Sender: FDA-Public Use
  Company Number: CN-PFIZER INC-PV202200038331

PATIENT
  Age: 7 Year
  Sex: Male
  Weight: 19 kg

DRUGS (4)
  1. CYTARABINE [Suspect]
     Active Substance: CYTARABINE
     Indication: Acute lymphocytic leukaemia
     Dosage: 0.057 G, 1X/DAY
     Route: 042
     Dates: start: 20220710, end: 20220713
  2. CYTARABINE [Suspect]
     Active Substance: CYTARABINE
     Dosage: 0.057 G, 1X/DAY
     Route: 042
     Dates: start: 20220720, end: 20220723
  3. SODIUM CHLORIDE [Concomitant]
     Active Substance: SODIUM CHLORIDE
     Indication: Vehicle solution use
     Dosage: 20 ML, 1X/DAY
     Route: 042
     Dates: start: 20220710, end: 20220713
  4. SODIUM CHLORIDE [Concomitant]
     Active Substance: SODIUM CHLORIDE
     Dosage: 20 ML, 1X/DAY
     Route: 042
     Dates: start: 20220720, end: 20220723

REACTIONS (2)
  - Hepatic function abnormal [Recovering/Resolving]
  - Drug-induced liver injury [Recovering/Resolving]

NARRATIVE: CASE EVENT DATE: 20220722
